FAERS Safety Report 8776496 (Version 1)
Quarter: 2012Q4

REPORT INFORMATION
  Report Type: Report from Study
  Country: US (occurrence: US)
  Receive Date: 20120910
  Receipt Date: 20120910
  Transmission Date: 20130627
  Serious: Yes (Other)
  Sender: FDA-Public Use
  Company Number: US-JNJFOC-20120901188

PATIENT
  Age: 68 None
  Sex: Female
  Weight: 62.14 kg

DRUGS (4)
  1. REMICADE [Suspect]
     Indication: ANKYLOSING SPONDYLITIS
     Route: 042
     Dates: start: 20120821
  2. REMICADE [Suspect]
     Indication: ANKYLOSING SPONDYLITIS
     Route: 042
     Dates: start: 201205
  3. REMICADE [Suspect]
     Indication: ANKYLOSING SPONDYLITIS
     Route: 042
     Dates: start: 2009, end: 201205
  4. HORMONE REPLACEMENT MEDICATION NOS [Concomitant]
     Indication: HOT FLUSH
     Route: 048

REACTIONS (12)
  - Chronic obstructive pulmonary disease [Not Recovered/Not Resolved]
  - Periarthritis [Recovering/Resolving]
  - Arthralgia [Recovered/Resolved]
  - Joint effusion [Recovered/Resolved]
  - Pain [Recovering/Resolving]
  - Burning sensation [Recovering/Resolving]
  - Fall [Recovered/Resolved]
  - Oedema peripheral [Recovering/Resolving]
  - Stress [Recovered/Resolved]
  - Erythema [Recovered/Resolved]
  - Hyperhidrosis [Not Recovered/Not Resolved]
  - Chills [Not Recovered/Not Resolved]
